FAERS Safety Report 17094888 (Version 1)
Quarter: 2019Q4

REPORT INFORMATION
  Report Type: Spontaneous
  Country: DE (occurrence: DE)
  Receive Date: 20191130
  Receipt Date: 20191130
  Transmission Date: 20200122
  Serious: Yes (Hospitalization, Other)
  Sender: FDA-Public Use
  Company Number: DE-ACCORD-162774

PATIENT
  Age: 15 Year
  Sex: Female
  Weight: 58 kg

DRUGS (1)
  1. SERTRALINE [Suspect]
     Active Substance: SERTRALINE HYDROCHLORIDE
     Indication: ANTIDEPRESSANT THERAPY
     Route: 048

REACTIONS (6)
  - Syncope [Recovered/Resolved]
  - Hyperventilation [Recovered/Resolved]
  - Headache [Recovered/Resolved]
  - Gastrointestinal pain [Recovered/Resolved]
  - Nausea [Recovered/Resolved]
  - Tremor [Recovered/Resolved]

NARRATIVE: CASE EVENT DATE: 20190320
